FAERS Safety Report 9485613 (Version 1)
Quarter: 2013Q3

REPORT INFORMATION
  Report Type: Spontaneous
  Country: FI (occurrence: FI)
  Receive Date: 20130829
  Receipt Date: 20130829
  Transmission Date: 20140515
  Serious: Yes (Hospitalization)
  Sender: FDA-Public Use
  Company Number: FI-ROCHE-1266579

PATIENT
  Age: 22 Year
  Sex: Female

DRUGS (1)
  1. ZELBORAF [Suspect]
     Indication: METASTATIC MALIGNANT MELANOMA
     Dosage: 4 TABLETS IN THE MORNING AND 4 TABLETS IN THE EVENING
     Route: 048
     Dates: start: 201307, end: 201308

REACTIONS (7)
  - Local swelling [Unknown]
  - Arthritis infective [Unknown]
  - Pyrexia [Unknown]
  - Diarrhoea [Unknown]
  - C-reactive protein increased [Unknown]
  - Arthralgia [Unknown]
  - Gait disturbance [Unknown]
